FAERS Safety Report 9774835 (Version 1)
Quarter: 2013Q4

REPORT INFORMATION
  Report Type: Spontaneous
  Country: US (occurrence: None)
  Receive Date: 20131219
  Receipt Date: 20131219
  Transmission Date: 20140711
  Serious: Yes (Hospitalization)
  Sender: FDA-Public Use
  Company Number: None

PATIENT
  Age: 58 Year
  Sex: Male
  Weight: 77.11 kg

DRUGS (8)
  1. CHANTIX [Suspect]
     Indication: SMOKING CESSATION THERAPY
     Route: 048
     Dates: start: 2010
  2. KLONOPIN [Concomitant]
  3. NOROVASC [Concomitant]
  4. RISPERDOL [Concomitant]
  5. METROPOLOL [Concomitant]
  6. BENZTROGINE [Concomitant]
  7. ASPIRIN [Concomitant]
  8. LOSARTAN [Concomitant]

REACTIONS (2)
  - Rash generalised [None]
  - Lip swelling [None]
